FAERS Safety Report 19133714 (Version 2)
Quarter: 2021Q2

REPORT INFORMATION
  Report Type: Spontaneous
  Country: AU (occurrence: AU)
  Receive Date: 20210414
  Receipt Date: 20210427
  Transmission Date: 20210717
  Serious: Yes (Other)
  Sender: FDA-Public Use
  Company Number: AU-PFIZER INC-2020188728

PATIENT
  Sex: Female

DRUGS (4)
  1. FENTYL [Interacting]
     Active Substance: FENTANYL
     Dosage: UNK
  2. DIFLUCAN [Suspect]
     Active Substance: FLUCONAZOLE
     Indication: MENINGITIS CRYPTOCOCCAL
     Dosage: 1 DF
     Route: 048
  3. GABAPENTIN. [Concomitant]
     Active Substance: GABAPENTIN
     Dosage: UNK
  4. NORSPAN [Interacting]
     Active Substance: BUPRENORPHINE
     Dosage: UNK

REACTIONS (5)
  - Meningitis cryptococcal [Unknown]
  - Autoimmune disorder [Unknown]
  - Muscular weakness [Unknown]
  - Drug interaction [Unknown]
  - Therapeutic product effect decreased [Unknown]
